FAERS Safety Report 4309876-X (Version None)
Quarter: 2004Q1

REPORT INFORMATION
  Report Type: 
  Country: None (occurrence: None)
  Receive Date: 20040303
  Receipt Date: 20040112
  Transmission Date: 20041129
  Serious: Yes (Other)
  Sender: FDA-Public Use
  Company Number: US-BRISTOL-MYERS SQUIBB COMPANY-12476230

PATIENT
  Age: 33 Year
  Sex: Male

DRUGS (1)
  1. ABILIFY [Suspect]
     Indication: PARANOIA
     Route: 048

REACTIONS (1)
  - PRIAPISM [None]
